FAERS Safety Report 16448483 (Version 4)
Quarter: 2019Q3

REPORT INFORMATION
  Report Type: Spontaneous
  Country: US (occurrence: US)
  Receive Date: 20190619
  Receipt Date: 20190717
  Transmission Date: 20191004
  Serious: No
  Sender: FDA-Public Use
  Company Number: US-UNITED THERAPEUTICS-UNT-2019-010165

PATIENT
  Age: 68 Year
  Sex: Female

DRUGS (4)
  1. REMODULIN [Suspect]
     Active Substance: TREPROSTINIL
     Dosage: 0.0087 ?G/KG, CONTINUING
     Route: 058
  2. REMODULIN [Suspect]
     Active Substance: TREPROSTINIL
     Indication: PULMONARY ARTERIAL HYPERTENSION
     Dosage: 0.0125 ?G/KG, CONTINUING
     Route: 058
     Dates: start: 201906
  3. REMODULIN [Suspect]
     Active Substance: TREPROSTINIL
     Dosage: UNK UNK, CONTINUING
     Route: 058
     Dates: start: 20190611
  4. REMODULIN [Suspect]
     Active Substance: TREPROSTINIL
     Indication: PULMONARY ARTERIAL HYPERTENSION
     Dosage: 0.0078 ?G/KG, CONTINUING
     Route: 058

REACTIONS (9)
  - Productive cough [Unknown]
  - Oedema [Unknown]
  - Diarrhoea [Unknown]
  - Infusion site pruritus [Unknown]
  - Pain in jaw [Unknown]
  - Pain in extremity [Unknown]
  - Infusion site pain [Unknown]
  - Infusion site erythema [Unknown]
  - Nausea [Unknown]

NARRATIVE: CASE EVENT DATE: 201906
